FAERS Safety Report 20146813 (Version 2)
Quarter: 2022Q1

REPORT INFORMATION
  Report Type: Spontaneous
  Country: VN (occurrence: VN)
  Receive Date: 20211203
  Receipt Date: 20220118
  Transmission Date: 20220423
  Serious: Yes (Other)
  Sender: FDA-Public Use
  Company Number: VN-BAYER-2021A259191

PATIENT
  Age: 70 Year
  Sex: Male

DRUGS (1)
  1. STIVARGA [Suspect]
     Active Substance: REGORAFENIB
     Indication: Rectal cancer metastatic
     Dosage: 120 MG, QD
     Route: 048
     Dates: start: 202111

REACTIONS (5)
  - Hyperthyroidism [None]
  - Constipation [Recovering/Resolving]
  - Hyperthermia [Recovering/Resolving]
  - Epistaxis [Recovering/Resolving]
  - Off label use [None]

NARRATIVE: CASE EVENT DATE: 20211101
